FAERS Safety Report 4603202-4 (Version None)
Quarter: 2005Q1

REPORT INFORMATION
  Report Type: 
  Country: None (occurrence: None)
  Receive Date: 20050307
  Receipt Date: 20050224
  Transmission Date: 20050727
  Serious: Yes (Death)
  Sender: FDA-Public Use
  Company Number: A-CH2005-08979

PATIENT
  Age: 67 Year
  Sex: Male

DRUGS (7)
  1. TRACLEER [Suspect]
     Indication: PULMONARY HYPERTENSION
     Dosage: 62.5 MG, BID, ORAL
     Route: 048
     Dates: start: 20040706
  2. LASIX RETARD            (FUROSEMIDE) [Concomitant]
  3. ZYRTEC [Concomitant]
  4. LANSOPRAZOLE [Concomitant]
  5. ADALAT [Concomitant]
  6. LIPITOR [Concomitant]
  7. WARFARIN SODIUM [Concomitant]

REACTIONS (4)
  - ABDOMINAL PAIN [None]
  - DYSPEPSIA [None]
  - HEADACHE [None]
  - PAIN IN EXTREMITY [None]
